FAERS Safety Report 4396292-8 (Version None)
Quarter: 2004Q3

REPORT INFORMATION
  Report Type: 
  Country: None (occurrence: None)
  Receive Date: 20040708
  Receipt Date: 20040629
  Transmission Date: 20050211
  Serious: Yes (Hospitalization)
  Sender: FDA-Public Use
  Company Number: ENT 2004-0132

PATIENT
  Age: 64 Year
  Sex: Male

DRUGS (3)
  1. COMTAN [Suspect]
     Indication: PARKINSON'S DISEASE
     Dosage: 800 MG
     Route: 048
     Dates: start: 20040430, end: 20040508
  2. REQUIP [Concomitant]
  3. SINEMET [Concomitant]

REACTIONS (2)
  - DYSKINESIA [None]
  - HEPATIC ENCEPHALOPATHY [None]
